FAERS Safety Report 12090551 (Version 2)
Quarter: 2016Q1

REPORT INFORMATION
  Report Type: Report from Study
  Country: CA (occurrence: CA)
  Receive Date: 20160218
  Receipt Date: 20160322
  Transmission Date: 20160526
  Serious: Yes (Other)
  Sender: FDA-Public Use
  Company Number: CA-JNJFOC-20160212003

PATIENT
  Age: 7 Year
  Sex: Female
  Weight: 32 kg

DRUGS (4)
  1. REMICADE [Suspect]
     Active Substance: INFLIXIMAB
     Indication: UVEITIS
     Route: 042
     Dates: start: 20160212
  2. REMICADE [Suspect]
     Active Substance: INFLIXIMAB
     Indication: UVEITIS
     Route: 042
     Dates: start: 20120818, end: 20160212
  3. REMICADE [Suspect]
     Active Substance: INFLIXIMAB
     Indication: JUVENILE IDIOPATHIC ARTHRITIS
     Route: 042
     Dates: start: 20120818, end: 20160212
  4. REMICADE [Suspect]
     Active Substance: INFLIXIMAB
     Indication: JUVENILE IDIOPATHIC ARTHRITIS
     Route: 042
     Dates: start: 20160212

REACTIONS (3)
  - Uveitis [Unknown]
  - Product use issue [Unknown]
  - Off label use [Unknown]

NARRATIVE: CASE EVENT DATE: 20120818
